FAERS Safety Report 19142245 (Version 1)
Quarter: 2021Q2

REPORT INFORMATION
  Report Type: Spontaneous
  Country: US (occurrence: US)
  Receive Date: 20210415
  Receipt Date: 20210415
  Transmission Date: 20210717
  Serious: No
  Sender: FDA-Public Use
  Company Number: US-CHIASMA-2021CHI00028

PATIENT
  Age: 52 Year
  Sex: Female
  Weight: 78.46 kg

DRUGS (6)
  1. LISINORPIL [Concomitant]
     Dosage: 10 MG, 1X/DAY
  2. ALBUTEROL INHALER [Concomitant]
     Active Substance: ALBUTEROL
  3. BECLOMETHASONE INHALER [Concomitant]
     Dosage: 80 UNK
  4. MYCAPSSA [Suspect]
     Active Substance: OCTREOTIDE
     Indication: BLOOD GROWTH HORMONE INCREASED
  5. MYCAPSSA [Suspect]
     Active Substance: OCTREOTIDE
     Indication: ACROMEGALY
     Dosage: 20 MG, 2X/DAY
     Route: 048
     Dates: start: 20200923
  6. ZYRTEC [Concomitant]
     Active Substance: CETIRIZINE HYDROCHLORIDE
     Dosage: 10 MG, 1X/DAY

REACTIONS (1)
  - Weight decreased [Recovered/Resolved]

NARRATIVE: CASE EVENT DATE: 202009
